FAERS Safety Report 4375230-8 (Version None)
Quarter: 2004Q2

REPORT INFORMATION
  Report Type: 
  Country: None (occurrence: None)
  Receive Date: 20040610
  Receipt Date: 20040107
  Transmission Date: 20050107
  Serious: Yes (Hospitalization)
  Sender: FDA-Public Use
  Company Number: 2003SE05496

PATIENT
  Age: 72 Year
  Sex: Male

DRUGS (3)
  1. CRESTOR [Suspect]
     Indication: HYPERCHOLESTEROLAEMIA
     Dosage: 40 MG DAILY PO
     Route: 048
     Dates: start: 20031021, end: 20031120
  2. NEORAL [Concomitant]
  3. LASIX [Concomitant]

REACTIONS (2)
  - HAEMODIALYSIS [None]
  - RHABDOMYOLYSIS [None]
